FAERS Safety Report 11099646 (Version 1)
Quarter: 2015Q2

REPORT INFORMATION
  Report Type: Spontaneous
  Country: US (occurrence: None)
  Receive Date: 20150507
  Receipt Date: 20150507
  Transmission Date: 20150821
  Serious: Yes (Hospitalization)
  Sender: FDA-Public Use
  Company Number: None

PATIENT
  Age: 55 Year
  Sex: Male
  Weight: 139.71 kg

DRUGS (6)
  1. BRAUN STERILE WATER [Concomitant]
  2. LEVAQUIN [Concomitant]
     Active Substance: LEVOFLOXACIN
  3. 1-FLOW HOMEPUMP ECLIPSE [Concomitant]
  4. VANCOMYCIN [Suspect]
     Active Substance: VANCOMYCIN
     Dosage: NDC NUMBER:  0409-6509-01 0409-6500-01, 2000 MG Q12H, IV ??
     Route: 042
     Dates: start: 20150217, end: 20150302
  5. BRAUN NACL 0.9% [Concomitant]
  6. BICALUTAMIDE. [Concomitant]
     Active Substance: BICALUTAMIDE

REACTIONS (2)
  - Rash [None]
  - Staphylococcal bacteraemia [None]

NARRATIVE: CASE EVENT DATE: 20150305
